FAERS Safety Report 20428865 (Version 1)
Quarter: 2022Q1

REPORT INFORMATION
  Report Type: Spontaneous
  Country: US (occurrence: None)
  Receive Date: 20220204
  Receipt Date: 20220204
  Transmission Date: 20220423
  Serious: Yes (Other)
  Sender: FDA-Public Use
  Company Number: US-ROCHE-3015640

PATIENT
  Age: 57 Year
  Sex: Female
  Weight: 43.130 kg

DRUGS (1)
  1. BONIVA [Suspect]
     Active Substance: IBANDRONATE SODIUM
     Indication: Osteoporosis
     Route: 048

REACTIONS (4)
  - Bone density abnormal [Unknown]
  - Fall [Unknown]
  - Fracture [Unknown]
  - Gingivitis [Unknown]
